FAERS Safety Report 4582784-5 (Version None)
Quarter: 2005Q1

REPORT INFORMATION
  Report Type: 
  Country: None (occurrence: None)
  Receive Date: 20050215
  Receipt Date: 20050112
  Transmission Date: 20050727
  Serious: Yes (Other)
  Sender: FDA-Public Use
  Company Number: AU-GLAXOSMITHKLINE-B0364865A

PATIENT
  Age: 30 Year
  Sex: Female

DRUGS (1)
  1. AROPAX [Suspect]
     Indication: ANXIETY
     Route: 065
     Dates: start: 20041227, end: 20050106

REACTIONS (18)
  - ABASIA [None]
  - DEPRESSED MOOD [None]
  - DERMATITIS EXFOLIATIVE [None]
  - ILL-DEFINED DISORDER [None]
  - INFECTION [None]
  - INFLAMMATION [None]
  - INSOMNIA [None]
  - LOCAL SWELLING [None]
  - OEDEMA [None]
  - PAIN IN EXTREMITY [None]
  - PHOTOSENSITIVITY REACTION [None]
  - PYREXIA [None]
  - RASH [None]
  - RASH PAPULAR [None]
  - RASH PRURITIC [None]
  - SCAR [None]
  - SCRATCH [None]
  - STRESS [None]
